FAERS Safety Report 10381024 (Version 1)
Quarter: 2014Q1

REPORT INFORMATION
  Report Type: Spontaneous
  Country: US (occurrence: None)
  Receive Date: 20140306
  Receipt Date: 20140306
  Transmission Date: 20141002
  Serious: Yes (Hospitalization, Other)
  Sender: FDA-Public Use
  Company Number: 163-21880-13020267

PATIENT
  Age: 76 Year
  Sex: Female

DRUGS (3)
  1. REVLIMID (LENALIDOMIDE) (25 MILLIGRAM, CAPSULES) [Suspect]
     Indication: PLASMA CELL MYELOMA
     Route: 048
     Dates: start: 20120201, end: 20120215
  2. ZOFRAN [Suspect]
     Indication: NAUSEA
     Dates: start: 20120224
  3. ELOTUZUMAB [Concomitant]

REACTIONS (1)
  - Dermatitis bullous [None]
